FAERS Safety Report 8926338 (Version 1)
Quarter: 2012Q4

REPORT INFORMATION
  Report Type: 
  Country: GB (occurrence: GB)
  Receive Date: 20121127
  Receipt Date: 20121127
  Transmission Date: 20130627
  Serious: Yes (Congenital Anomaly, Other)
  Sender: FDA-Public Use
  Company Number: GB-TEVA-371676ISR

PATIENT
  Age: 33 Year
  Sex: Female
  Weight: 52.6 kg

DRUGS (1)
  1. CABERGOLINE [Suspect]
     Indication: HYPERPROLACTINAEMIA
     Route: 048
     Dates: start: 20080424

REACTIONS (3)
  - Foetal exposure during pregnancy [Unknown]
  - Trisomy 18 [Unknown]
  - Abortion spontaneous [Unknown]
